FAERS Safety Report 9792724 (Version 1)
Quarter: 2014Q1

REPORT INFORMATION
  Report Type: Spontaneous
  Country: US (occurrence: US)
  Receive Date: 20140102
  Receipt Date: 20140102
  Transmission Date: 20141002
  Serious: No
  Sender: FDA-Public Use
  Company Number: US-SANOFI-AVENTIS-2013SA024913

PATIENT
  Age: 46 Year
  Sex: Female
  Weight: 49 kg

DRUGS (2)
  1. AUBAGIO [Suspect]
     Indication: MULTIPLE SCLEROSIS
     Route: 048
     Dates: start: 20130221, end: 20130401
  2. ASPIRIN [Concomitant]
     Indication: CEREBROVASCULAR ACCIDENT
     Route: 065
     Dates: start: 20111215

REACTIONS (10)
  - Colitis ulcerative [Recovered/Resolved]
  - Haematochezia [Recovered/Resolved]
  - Mucous stools [Recovered/Resolved]
  - Flatulence [Unknown]
  - Red blood cell count decreased [Recovering/Resolving]
  - Diarrhoea [Not Recovered/Not Resolved]
  - Alopecia [Not Recovered/Not Resolved]
  - Nausea [Unknown]
  - Drug dose omission [Unknown]
  - White blood cell count decreased [Recovering/Resolving]
